FAERS Safety Report 13908284 (Version 1)
Quarter: 2017Q3

REPORT INFORMATION
  Report Type: Other
  Country: CA (occurrence: CA)
  Receive Date: 20170826
  Receipt Date: 20170826
  Transmission Date: 20171127
  Serious: Yes (Hospitalization)
  Sender: FDA-Public Use
  Company Number: CA-GE HEALTHCARE LIFE SCIENCES-2017CSU002630

PATIENT

DRUGS (1)
  1. OMNIPAQUE [Suspect]
     Active Substance: IOHEXOL
     Indication: PRODUCT USED FOR UNKNOWN INDICATION
     Dosage: 124 ML, SINGLE
     Route: 042

REACTIONS (3)
  - Lip swelling [Recovering/Resolving]
  - Generalised erythema [Recovering/Resolving]
  - Pruritus [Recovering/Resolving]
